FAERS Safety Report 21436087 (Version 1)
Quarter: 2022Q4

REPORT INFORMATION
  Report Type: Spontaneous
  Country: CA (occurrence: CA)
  Receive Date: 20221010
  Receipt Date: 20221010
  Transmission Date: 20230113
  Serious: Yes (Other)
  Sender: FDA-Public Use
  Company Number: CA-SA-2022SA409491

PATIENT
  Age: 52 Year
  Sex: Female

DRUGS (3)
  1. LEFLUNOMIDE [Suspect]
     Active Substance: LEFLUNOMIDE
     Dosage: 10 MG, QD
  2. LEFLUNOMIDE [Suspect]
     Active Substance: LEFLUNOMIDE
     Dosage: 20 MG
  3. ABATACEPT [Suspect]
     Active Substance: ABATACEPT
     Dosage: UNK
     Dates: start: 2017, end: 2018

REACTIONS (2)
  - Ovarian cancer [Unknown]
  - Hypertransaminasaemia [Unknown]

NARRATIVE: CASE EVENT DATE: 20180101
